FAERS Safety Report 5010764-4 (Version None)
Quarter: 2006Q2

REPORT INFORMATION
  Report Type: 
  Country: None (occurrence: None)
  Receive Date: 20060525
  Receipt Date: 20060419
  Transmission Date: 20061013
  Serious: Yes (Hospitalization)
  Sender: FDA-Public Use
  Company Number: JP-ROCHE-445196

PATIENT
  Age: 44 Year
  Sex: Male
  Weight: 57 kg

DRUGS (1)
  1. ROCEPHIN [Suspect]
     Indication: ACUTE TONSILLITIS
     Route: 041
     Dates: start: 20060417, end: 20060417

REACTIONS (1)
  - ANAPHYLACTIC SHOCK [None]
